FAERS Safety Report 8174388-2 (Version None)
Quarter: 2012Q1

REPORT INFORMATION
  Report Type: 
  Country: None (occurrence: None)
  Receive Date: 20120229
  Receipt Date: 20120227
  Transmission Date: 20120608
  Serious: Yes (Death)
  Sender: FDA-Public Use
  Company Number: JP-BAYER-2012-013787

PATIENT
  Age: 83 Year
  Sex: Male

DRUGS (3)
  1. URSO 250 [Concomitant]
     Indication: CHRONIC HEPATITIS
     Dosage: 100 MG, BID
     Route: 048
     Dates: end: 20120202
  2. CEREKINON [Concomitant]
     Indication: IRRITABLE BOWEL SYNDROME
     Dosage: 100 MG, TID
     Route: 048
     Dates: end: 20120202
  3. NEXAVAR [Suspect]
     Indication: HEPATIC NEOPLASM MALIGNANT
     Dosage: DAILY DOSE 400 MG
     Route: 048
     Dates: start: 20120118, end: 20120202

REACTIONS (2)
  - SUDDEN DEATH [None]
  - PYREXIA [None]
